FAERS Safety Report 8166995-8 (Version None)
Quarter: 2012Q1

REPORT INFORMATION
  Report Type: 
  Country: None (occurrence: None)
  Receive Date: 20120227
  Receipt Date: 20120220
  Transmission Date: 20120608
  Serious: Yes (Disabling)
  Sender: FDA-Public Use
  Company Number: GB-UCBSA-051371

PATIENT
  Age: 32 Year
  Sex: Female

DRUGS (3)
  1. CIMZIA [Suspect]
     Indication: RHEUMATOID ARTHRITIS
     Route: 058
     Dates: start: 20120126
  2. METHOTREXATE [Concomitant]
  3. AZULFIDINE [Concomitant]

REACTIONS (2)
  - NAUSEA [None]
  - DIZZINESS [None]
